FAERS Safety Report 6460099-8 (Version None)
Quarter: 2009Q4

REPORT INFORMATION
  Report Type: 
  Country: None (occurrence: None)
  Receive Date: 20091129
  Receipt Date: 20091123
  Transmission Date: 20100525
  Serious: Yes (Life-Threatening, Hospitalization)
  Sender: FDA-Public Use
  Company Number: PHEH2009US16597

PATIENT

DRUGS (2)
  1. RECLAST [Suspect]
  2. CALCIUM CARBONATE W/COLECALCIFEROL [Suspect]

REACTIONS (2)
  - CONSTIPATION [None]
  - FEELING ABNORMAL [None]
